FAERS Safety Report 5537144-7 (Version None)
Quarter: 2007Q4

REPORT INFORMATION
  Report Type: 
  Country: None (occurrence: None)
  Receive Date: 20071205
  Receipt Date: 20071205
  Transmission Date: 20080405
  Serious: Yes (Hospitalization)
  Sender: FDA-Public Use
  Company Number: None

PATIENT
  Sex: Female
  Weight: 82.1011 kg

DRUGS (7)
  1. AROMASIN [Suspect]
     Indication: BREAST CANCER
     Dosage: 25 MG ONCE PER DAY ORAL
     Route: 048
     Dates: start: 20071122, end: 20071126
  2. ATACAND [Concomitant]
  3. LISINOPRIL [Concomitant]
  4. HYDROCHLOROTHIAZIDE [Concomitant]
  5. CLONIDINE [Concomitant]
  6. ATENOLOL [Concomitant]
  7. ASPIRIN [Concomitant]

REACTIONS (1)
  - HYPERCALCAEMIA [None]
